FAERS Safety Report 14267208 (Version 7)
Quarter: 2022Q1

REPORT INFORMATION
  Report Type: Spontaneous
  Country: ES (occurrence: ES)
  Receive Date: 20171211
  Receipt Date: 20220309
  Transmission Date: 20220424
  Serious: Yes (Hospitalization, Other)
  Sender: FDA-Public Use
  Company Number: ES-EMA-20170630-SAMEERHPDD-112536791

PATIENT
  Age: 78 Year
  Sex: Male
  Weight: 73 kg

DRUGS (29)
  1. ASPIRIN [Suspect]
     Active Substance: ASPIRIN
     Indication: Product used for unknown indication
     Dosage: 100 MILLIGRAM, ONCE A DAY
     Route: 048
     Dates: start: 20170207
  2. CLOPIDOGREL [Suspect]
     Active Substance: CLOPIDOGREL BISULFATE
     Indication: Anticoagulant therapy
     Dosage: 75 MILLIGRAM, ONCE A DAY
     Route: 048
     Dates: start: 20170504
  3. CLOPIDOGREL [Suspect]
     Active Substance: CLOPIDOGREL BISULFATE
     Indication: Ischaemic cardiomyopathy
     Dosage: 100 MILLIGRAM, ONCE A DAY
     Route: 048
     Dates: start: 20170505
  4. RAMIPRIL [Suspect]
     Active Substance: RAMIPRIL
     Indication: Acute myocardial infarction
     Dosage: CODE NOT BROKEN
     Route: 048
     Dates: start: 20170505
  5. VALSARTAN [Suspect]
     Active Substance: VALSARTAN
     Indication: Acute myocardial infarction
     Dosage: 1 MILLIGRAM, ONCE A DAY
     Route: 048
     Dates: start: 20170505
  6. SACUBITRIL\VALSARTAN [Suspect]
     Active Substance: SACUBITRIL\VALSARTAN
     Indication: Acute myocardial infarction
     Dosage: CODE NOT BROKEN
     Route: 048
     Dates: start: 20170505
  7. SACUBITRIL\VALSARTAN [Suspect]
     Active Substance: SACUBITRIL\VALSARTAN
     Dosage: UNK
     Route: 048
  8. DIOVAN [Suspect]
     Active Substance: VALSARTAN
     Indication: Acute myocardial infarction
     Dosage: CODE NOT BROKEN
     Route: 048
     Dates: start: 20170505
  9. ACENOCOUMAROL [Concomitant]
     Active Substance: ACENOCOUMAROL
     Indication: Atrial fibrillation
     Dosage: 4 MILLIGRAM, EVERY OTHER DAY
     Route: 048
     Dates: start: 20170511
  10. AMIODARONA CLORHIDRATO [Concomitant]
     Indication: Arrhythmia prophylaxis
     Dosage: 200 MILLIGRAM, ONCE A DAY
     Route: 048
     Dates: start: 20170511
  11. AMIODARONA CLORHIDRATO [Concomitant]
     Dosage: 200 MILLIGRAM, ONCE A DAY
     Route: 048
     Dates: start: 20170512
  12. BISOPROLOL [Concomitant]
     Active Substance: BISOPROLOL
     Indication: Ischaemic cardiomyopathy
     Dosage: 3 MILLIGRAM, ONCE A DAY
     Route: 048
     Dates: start: 20170504
  13. BISOPROLOL [Concomitant]
     Active Substance: BISOPROLOL
     Indication: Angina pectoris
  14. SPIRONOLACTONE [Concomitant]
     Active Substance: SPIRONOLACTONE
     Indication: Myocardial infarction
     Dosage: 25 MILLIGRAM, ONCE A DAY
     Route: 048
     Dates: start: 20170504
  15. SPIRONOLACTONE [Concomitant]
     Active Substance: SPIRONOLACTONE
     Indication: Ischaemic cardiomyopathy
  16. FUROSEMIDE [Concomitant]
     Active Substance: FUROSEMIDE
     Indication: Hypertension
     Dosage: 20 MILLIGRAM, ONCE A DAY
     Route: 048
     Dates: start: 20170519
  17. FUROSEMIDE [Concomitant]
     Active Substance: FUROSEMIDE
     Dosage: 20 MILLIGRAM, ONCE A DAY
     Route: 048
     Dates: start: 20170512
  18. GLICLAZIDE [Concomitant]
     Active Substance: GLICLAZIDE
     Indication: Diabetes mellitus
     Dosage: 30 MILLIGRAM, ONCE A DAY
     Route: 048
     Dates: start: 20141001
  19. GLICLAZIDE [Concomitant]
     Active Substance: GLICLAZIDE
     Indication: Type 2 diabetes mellitus
  20. LORAZEPAM [Concomitant]
     Active Substance: LORAZEPAM
     Indication: Anxiolytic therapy
     Dosage: 1 MILLIGRAM, ONCE A DAY
     Route: 048
     Dates: start: 20170501
  21. METFORMIN HYDROCHLORIDE [Concomitant]
     Active Substance: METFORMIN HYDROCHLORIDE
     Indication: Diabetes mellitus
     Dosage: 850 MILLIGRAM, ONCE A DAY
     Route: 048
     Dates: start: 20080207
  22. METFORMIN HYDROCHLORIDE [Concomitant]
     Active Substance: METFORMIN HYDROCHLORIDE
     Indication: Type 2 diabetes mellitus
  23. OMEPRAZOLE [Concomitant]
     Active Substance: OMEPRAZOLE
     Indication: Prophylaxis against gastrointestinal ulcer
     Dosage: 20 MILLIGRAM, ONCE A DAY
     Route: 048
     Dates: start: 20080207
  24. OMEPRAZOLE [Concomitant]
     Active Substance: OMEPRAZOLE
     Indication: Prophylaxis against gastrointestinal ulcer
  25. SODIUM CHLORIDE [Concomitant]
     Active Substance: SODIUM CHLORIDE
     Indication: Product used for unknown indication
     Dosage: UNK
     Route: 065
     Dates: start: 20170501
  26. SODIUM CHLORIDE [Concomitant]
     Active Substance: SODIUM CHLORIDE
     Dosage: 1000 MILLILITER
     Route: 042
     Dates: start: 20170531
  27. PITAVASTATIN [Concomitant]
     Active Substance: PITAVASTATIN
     Indication: Hypercholesterolaemia
     Dosage: 4 MILLIGRAM, ONCE A DAY
     Route: 048
     Dates: start: 20170512
  28. SPIRIVA [Concomitant]
     Active Substance: TIOTROPIUM BROMIDE MONOHYDRATE
     Indication: Prophylaxis
     Dosage: 18 MICROGRAM, ONCE A DAY
     Route: 048
     Dates: start: 20141130
  29. TAMSULOSIN HYDROCHLORIDE [Concomitant]
     Active Substance: TAMSULOSIN HYDROCHLORIDE
     Indication: Urinary tract disorder
     Dosage: 0.4 MILLIGRAM, ONCE A DAY
     Route: 048
     Dates: start: 20170511

REACTIONS (1)
  - Haematuria [Recovered/Resolved]

NARRATIVE: CASE EVENT DATE: 20170515
